FAERS Safety Report 4839212-1 (Version None)
Quarter: 2005Q4

REPORT INFORMATION
  Report Type: 
  Country: None (occurrence: None)
  Receive Date: 20051025
  Receipt Date: 20041122
  Transmission Date: 20060501
  Serious: Yes (Hospitalization, Other)
  Sender: FDA-Public Use
  Company Number: HQWYE642923NOV04

PATIENT
  Age: 15 Year
  Sex: Female
  Weight: 58.8 kg

DRUGS (3)
  1. RAPAMUNE [Suspect]
     Indication: HEART TRANSPLANT
     Dosage: 6 MG 1X PER 1 DAY; ORAL
     Route: 048
     Dates: start: 20030101
  2. PROGRAF [Concomitant]
  3. CELLCEPT [Concomitant]

REACTIONS (3)
  - IMMUNOSUPPRESSANT DRUG LEVEL INCREASED [None]
  - NAUSEA [None]
  - VOMITING [None]
